FAERS Safety Report 21582616 (Version 2)
Quarter: 2022Q4

REPORT INFORMATION
  Report Type: Report from Study
  Country: US (occurrence: US)
  Receive Date: 20221111
  Receipt Date: 20221210
  Transmission Date: 20230113
  Serious: Yes (Other)
  Sender: FDA-Public Use
  Company Number: US-TAKEDA-2022TUS083931

PATIENT
  Sex: Female

DRUGS (4)
  1. TEDUGLUTIDE [Suspect]
     Active Substance: TEDUGLUTIDE
     Indication: Short-bowel syndrome
     Dosage: 1.93 MILLIGRAM, QD
     Route: 058
     Dates: start: 20220823
  2. TEDUGLUTIDE [Suspect]
     Active Substance: TEDUGLUTIDE
     Indication: Short-bowel syndrome
     Dosage: 1.93 MILLIGRAM, QD
     Route: 058
     Dates: start: 20220823
  3. TEDUGLUTIDE [Suspect]
     Active Substance: TEDUGLUTIDE
     Indication: Short-bowel syndrome
     Dosage: 1.93 MILLIGRAM, QD
     Route: 058
     Dates: start: 20220823
  4. TEDUGLUTIDE [Suspect]
     Active Substance: TEDUGLUTIDE
     Indication: Short-bowel syndrome
     Dosage: 1.93 MILLIGRAM, QD
     Route: 058
     Dates: start: 20220823

REACTIONS (3)
  - Hyperthyroidism [Unknown]
  - Weight decreased [Unknown]
  - Drug ineffective [Unknown]
